FAERS Safety Report 24647552 (Version 2)
Quarter: 2024Q4

REPORT INFORMATION
  Report Type: Spontaneous
  Country: US (occurrence: US)
  Receive Date: 20241121
  Receipt Date: 20241202
  Transmission Date: 20250114
  Serious: Yes (Death)
  Sender: MYLAN
  Company Number: US-MYLANLABS-2024M1104534

PATIENT
  Age: 14 Year
  Sex: Female

DRUGS (1)
  1. FENTANYL [Suspect]
     Active Substance: FENTANYL
     Indication: Toothache
     Dosage: UNK
     Route: 065

REACTIONS (2)
  - Off label use [Fatal]
  - Overdose [Fatal]
